FAERS Safety Report 8639335 (Version 3)
Quarter: 2012Q4

REPORT INFORMATION
  Report Type: 
  Country: US (occurrence: US)
  Receive Date: 20120627
  Receipt Date: 20120903
  Transmission Date: 20130627
  Serious: No
  Sender: FDA-Public Use
  Company Number: US-PFIZER INC-2012152787

PATIENT
  Age: 37 Year
  Sex: Male
  Weight: 97.95 kg

DRUGS (3)
  1. EFFEXOR XR [Suspect]
     Indication: BIPOLAR I DISORDER
     Dosage: 75 mg, 2x/day
     Route: 048
     Dates: start: 201107, end: 201204
  2. EFFEXOR XR [Suspect]
     Indication: DEPRESSION
     Dosage: 150 mg, 1x/day
     Route: 048
     Dates: start: 201204, end: 20120718
  3. DEPAKOTE SPRINKLES [Concomitant]
     Indication: AFFECTIVE DISORDER
     Dosage: UNK

REACTIONS (5)
  - Incorrect dose administered [Unknown]
  - Drug ineffective [Unknown]
  - Nerve injury [Not Recovered/Not Resolved]
  - Intervertebral disc protrusion [Unknown]
  - Upper respiratory tract infection [Recovering/Resolving]
